FAERS Safety Report 12931052 (Version 1)
Quarter: 2016Q4

REPORT INFORMATION
  Report Type: Spontaneous
  Country: US (occurrence: US)
  Receive Date: 20161110
  Receipt Date: 20161110
  Transmission Date: 20170207
  Serious: No
  Sender: FDA-Public Use
  Company Number: US-JAZZ-2016-US-017642

PATIENT
  Age: 37 Year
  Sex: Female

DRUGS (9)
  1. XYREM [Suspect]
     Active Substance: SODIUM OXYBATE
     Indication: CATAPLEXY
  2. CITALOPRAM [Concomitant]
     Active Substance: CITALOPRAM HYDROBROMIDE
  3. ADDERALL [Concomitant]
     Active Substance: AMPHETAMINE ASPARTATE\AMPHETAMINE SULFATE\DEXTROAMPHETAMINE SACCHARATE\DEXTROAMPHETAMINE SULFATE
  4. MELATONIN [Concomitant]
     Active Substance: MELATONIN
  5. XYREM [Suspect]
     Active Substance: SODIUM OXYBATE
     Indication: NARCOLEPSY
     Dosage: 2.25 G, BID
     Route: 048
     Dates: start: 201609
  6. ALPRAZOLAM. [Concomitant]
     Active Substance: ALPRAZOLAM
  7. KETOCONAZOLE. [Concomitant]
     Active Substance: KETOCONAZOLE
  8. MULTIVITAMINS [Concomitant]
     Active Substance: VITAMINS
  9. NUVIGIL [Concomitant]
     Active Substance: ARMODAFINIL

REACTIONS (7)
  - Feeling cold [Unknown]
  - Sensory disturbance [Unknown]
  - Nausea [Unknown]
  - Product preparation error [Unknown]
  - Dehydration [Unknown]
  - Paraesthesia [Unknown]
  - Sedation [Unknown]

NARRATIVE: CASE EVENT DATE: 201609
